FAERS Safety Report 6442204-2 (Version None)
Quarter: 2009Q4

REPORT INFORMATION
  Report Type: 
  Country: None (occurrence: None)
  Receive Date: 20091116
  Receipt Date: 20091109
  Transmission Date: 20100525
  Serious: Yes (Hospitalization, Other)
  Sender: FDA-Public Use
  Company Number: US-AMGEN-QUU373690

PATIENT
  Sex: Male

DRUGS (6)
  1. EPOGEN [Suspect]
     Indication: RENAL FAILURE CHRONIC
     Route: 042
  2. LABETALOL HCL [Concomitant]
  3. MINOXIDIL [Concomitant]
  4. NIFEDIPINE [Concomitant]
  5. MULTI-VITAMINS [Concomitant]
  6. PHOSLO [Concomitant]

REACTIONS (3)
  - DEVICE RELATED SEPSIS [None]
  - HYPERTENSION [None]
  - THERAPEUTIC RESPONSE DECREASED [None]
